FAERS Safety Report 16984584 (Version 4)
Quarter: 2020Q1

REPORT INFORMATION
  Report Type: Spontaneous
  Country: US (occurrence: US)
  Receive Date: 20191101
  Receipt Date: 20200103
  Transmission Date: 20200409
  Serious: No
  Sender: FDA-Public Use
  Company Number: US-PFIZER INC-2019469718

PATIENT
  Age: 65 Year
  Sex: Female
  Weight: 65.76 kg

DRUGS (2)
  1. IBRANCE [Suspect]
     Active Substance: PALBOCICLIB
     Indication: BREAST CANCER METASTATIC
     Dosage: 125 MG, 1X/DAY, CYCLIC
     Dates: start: 2019
  2. TRELEGY ELLIPTA [Concomitant]
     Active Substance: FLUTICASONE FUROATE\UMECLIDINIUM BROMIDE\VILANTEROL TRIFENATATE
     Indication: CHRONIC OBSTRUCTIVE PULMONARY DISEASE
     Dosage: ONE PUFF A DAY
     Route: 055

REACTIONS (6)
  - Mouth ulceration [Not Recovered/Not Resolved]
  - Fatigue [Unknown]
  - Stomatitis [Recovering/Resolving]
  - Tongue ulceration [Not Recovered/Not Resolved]
  - Lip ulceration [Not Recovered/Not Resolved]
  - Rash pruritic [Unknown]
